FAERS Safety Report 8310532-1 (Version None)
Quarter: 2012Q2

REPORT INFORMATION
  Report Type: 
  Country: None (occurrence: None)
  Receive Date: 20120425
  Receipt Date: 20120423
  Transmission Date: 20120825
  Serious: Yes (Hospitalization)
  Sender: FDA-Public Use
  Company Number: DE-ROCHE-1048752

PATIENT
  Sex: Male
  Weight: 60 kg

DRUGS (10)
  1. BISOPROLOL FUMARATE [Concomitant]
     Indication: HYPERTENSION
     Route: 048
     Dates: start: 20071210, end: 20091209
  2. TORSEMIDE [Concomitant]
     Indication: RENAL FAILURE
     Route: 048
     Dates: start: 20090724, end: 20100512
  3. LEVOTHYROXINE SODIUM [Concomitant]
     Indication: HYPOTHYROIDISM
     Route: 048
     Dates: start: 20090603, end: 20100512
  4. HUMALOG MIX 50/50 [Concomitant]
     Indication: DIABETES MELLITUS
     Route: 058
     Dates: start: 20090327, end: 20100512
  5. DREISAVIT N [Concomitant]
     Indication: PROPHYLAXIS
     Route: 048
     Dates: start: 20071214, end: 20100512
  6. CALCET [Concomitant]
     Indication: HYPERPHOSPHATAEMIA
     Route: 048
     Dates: start: 20090626, end: 20100512
  7. MIRCERA [Suspect]
     Indication: NEPHROGENIC ANAEMIA
     Route: 042
     Dates: start: 20090721, end: 20091013
  8. IRBESARTAN [Concomitant]
     Indication: HYPERTENSION
     Route: 048
     Dates: start: 20071210, end: 20091204
  9. LERCANIDIPINE [Concomitant]
     Indication: HYPERTENSION
     Route: 048
     Dates: start: 20090116, end: 20091005
  10. ASPIRIN [Concomitant]
     Indication: PROPHYLAXIS
     Route: 048
     Dates: start: 20071210

REACTIONS (1)
  - PNEUMONIA [None]
